FAERS Safety Report 26138894 (Version 2)
Quarter: 2025Q4

REPORT INFORMATION
  Report Type: Spontaneous
  Country: EU (occurrence: EU)
  Receive Date: 20251210
  Receipt Date: 20251224
  Transmission Date: 20260117
  Serious: Yes (Hospitalization, Other)
  Sender: SANOFI AVENTIS
  Company Number: EU-SANOFI-02740140

PATIENT
  Age: 84 Year
  Sex: Female

DRUGS (5)
  1. DUPIXENT [Suspect]
     Active Substance: DUPILUMAB
     Indication: Skin disorder
     Dosage: 300 MG, BIM
     Dates: start: 20240701
  2. VENLAFAXINE [Concomitant]
     Active Substance: VENLAFAXINE HYDROCHLORIDE
  3. LORAZEPAM [Concomitant]
     Active Substance: LORAZEPAM
  4. HYDROXYZINE [Concomitant]
     Active Substance: HYDROXYZINE HYDROCHLORIDE
  5. RAMIPRIL [Concomitant]
     Active Substance: RAMIPRIL

REACTIONS (23)
  - Hospitalisation [Unknown]
  - Blindness [Not Recovered/Not Resolved]
  - Retinal vein occlusion [Not Recovered/Not Resolved]
  - Optic ischaemic neuropathy [Unknown]
  - Visual acuity reduced [Unknown]
  - Coeliac artery stenosis [Unknown]
  - Aortic arteriosclerosis [Unknown]
  - Papilloedema [Unknown]
  - Renal artery fibromuscular dysplasia [Unknown]
  - Myalgia [Unknown]
  - Depression [Unknown]
  - Neutrophil count increased [Unknown]
  - Giant cell arteritis [Unknown]
  - C-reactive protein increased [Unknown]
  - Visual impairment [Not Recovered/Not Resolved]
  - Dysphagia [Unknown]
  - Leukocytosis [Unknown]
  - Fibromuscular dysplasia [Unknown]
  - Hypoalbuminaemia [Unknown]
  - Vision blurred [Not Recovered/Not Resolved]
  - Condition aggravated [Not Recovered/Not Resolved]
  - Arthralgia [Unknown]
  - Product use in unapproved indication [Unknown]

NARRATIVE: CASE EVENT DATE: 20240701
